FAERS Safety Report 8736118 (Version 3)
Quarter: 2012Q4

REPORT INFORMATION
  Report Type: 
  Country: US (occurrence: US)
  Receive Date: 20120822
  Receipt Date: 20121219
  Transmission Date: 20130627
  Serious: Yes (Other)
  Sender: FDA-Public Use
  Company Number: US-PFIZER INC-2012203715

PATIENT
  Age: 59 Year
  Sex: Male
  Weight: 74 kg

DRUGS (3)
  1. PROTONIX [Suspect]
     Indication: RECTAL BLEEDING
     Dosage: 40 mg, daily
     Dates: start: 201111
  2. PERCOCET [Concomitant]
     Indication: BACK DISORDER
     Dosage: 10/325 mg, two to three times or sometimes four times a day
     Dates: start: 2005
  3. DIAZEPAM [Concomitant]
     Indication: SLEEP DISORDER
     Dosage: 10 mg, daily
     Dates: start: 2005

REACTIONS (1)
  - Hodgkin^s disease [Not Recovered/Not Resolved]
